FAERS Safety Report 20825764 (Version 5)
Quarter: 2022Q4

REPORT INFORMATION
  Report Type: Report from Study
  Country: US (occurrence: US)
  Receive Date: 20220513
  Receipt Date: 20221011
  Transmission Date: 20230113
  Serious: Yes (Other)
  Sender: FDA-Public Use
  Company Number: US-INSMED, INC.-2022-00944-US

PATIENT
  Sex: Male
  Weight: 80.726 kg

DRUGS (2)
  1. ARIKAYCE [Suspect]
     Active Substance: AMIKACIN
     Indication: Mycobacterium avium complex infection
     Dosage: 590 MILLIGRAM, QD
     Route: 055
     Dates: start: 202203
  2. ETHAMBUTOL [Suspect]
     Active Substance: ETHAMBUTOL HYDROCHLORIDE
     Indication: Product used for unknown indication
     Route: 065

REACTIONS (9)
  - Renal impairment [Unknown]
  - Vision blurred [Not Recovered/Not Resolved]
  - Sputum increased [Not Recovered/Not Resolved]
  - Throat irritation [Unknown]
  - Fatigue [Unknown]
  - Accidental underdose [Unknown]
  - Incorrect product administration duration [Unknown]
  - Device issue [Unknown]
  - Drug dose omission by device [Unknown]

NARRATIVE: CASE EVENT DATE: 20220101
